FAERS Safety Report 6433808-1 (Version None)
Quarter: 2009Q4

REPORT INFORMATION
  Report Type: 
  Country: None (occurrence: None)
  Receive Date: 20091106
  Receipt Date: 20091106
  Transmission Date: 20100525
  Serious: No
  Sender: FDA-Public Use
  Company Number: None

PATIENT
  Age: 84 Year

DRUGS (1)
  1. VANCOMYCIN [Suspect]
     Indication: STAPHYLOCOCCAL ABSCESS
     Dosage: 1 GM EVERY DAY IV
     Route: 042
     Dates: start: 20081125, end: 20081128

REACTIONS (1)
  - THROMBOCYTOPENIA [None]
